FAERS Safety Report 4269649-3 (Version None)
Quarter: 2004Q1

REPORT INFORMATION
  Report Type: 
  Country: None (occurrence: None)
  Receive Date: 20040112
  Receipt Date: 20031230
  Transmission Date: 20041129
  Serious: Yes (Hospitalization)
  Sender: FDA-Public Use
  Company Number: PERI00204000015

PATIENT
  Age: 86 Year
  Sex: Male

DRUGS (18)
  1. COVERSYL (PERINDOPRIL) [Suspect]
     Indication: ILL-DEFINED DISORDER
     Dosage: DAILY PO
     Route: 048
     Dates: start: 20031014, end: 20031118
  2. PREVISCAN (FLUINDIONE) [Concomitant]
     Indication: ILL-DEFINED DISORDER
     Dosage: DAILY PO
     Route: 048
     Dates: start: 20031107, end: 20031113
  3. OMEPRAZOLE [Suspect]
     Indication: ILL-DEFINED DISORDER
     Dosage: DAILY PO
     Route: 048
     Dates: start: 20031107
  4. ACETAMINOPHEN W/ CODEINE [Suspect]
     Indication: ILL-DEFINED DISORDER
     Dosage: DAILY PO
     Route: 048
     Dates: end: 20031115
  5. AMLODIPINE BESYLATE [Suspect]
     Indication: ILL-DEFINED DISORDER
     Dosage: DAILY PO
     Route: 048
     Dates: start: 20031102
  6. ALDALIX (ALDALIX) [Suspect]
     Indication: ILL-DEFINED DISORDER
     Dosage: DAILY PO
     Route: 048
     Dates: start: 20031025, end: 20031115
  7. XATRAL (ALFUZOSIN) [Concomitant]
  8. FONZYLANE (BUFLOMEDIL HYDROCHLORIDE) [Concomitant]
  9. ASPEGIC 1000 [Concomitant]
  10. AMARYL [Concomitant]
  11. NOVONORM (REPAGLINIDE) [Concomitant]
  12. INSULIN [Concomitant]
  13. VIOXX [Concomitant]
  14. BENERVA (THIAMINE HYDROCHLORIDE) [Concomitant]
  15. BECILAN (PYRIDOXINE HYDROCHLORIDE) [Concomitant]
  16. NITROGLYCERIN [Concomitant]
  17. SINTROM [Concomitant]
  18. COZAAR [Concomitant]

REACTIONS (4)
  - BLOOD AMYLASE INCREASED [None]
  - CARDIAC FAILURE ACUTE [None]
  - LIPASE INCREASED [None]
  - RASH MACULO-PAPULAR [None]
